FAERS Safety Report 15315843 (Version 1)
Quarter: 2018Q3

REPORT INFORMATION
  Report Type: Spontaneous
  Country: US (occurrence: US)
  Receive Date: 20180815
  Receipt Date: 20180815
  Transmission Date: 20181010
  Serious: Yes (Disabling)
  Sender: FDA-Public Use
  Company Number: None

PATIENT
  Sex: Female

DRUGS (1)
  1. LEVOTHYROXINE DIFF DOSES [Suspect]
     Active Substance: LEVOTHYROXINE
     Indication: AUTOIMMUNE THYROIDITIS
     Route: 048

REACTIONS (11)
  - Dizziness [None]
  - Maternal exposure during pregnancy [None]
  - Abortion spontaneous [None]
  - Fatigue [None]
  - Impaired gastric emptying [None]
  - Anxiety [None]
  - Feeling abnormal [None]
  - Nausea [None]
  - Weight increased [None]
  - Hypertension [None]
  - Pregnancy [None]
